FAERS Safety Report 25762515 (Version 1)
Quarter: 2025Q3

REPORT INFORMATION
  Report Type: Report from Study
  Country: CA (occurrence: CA)
  Receive Date: 20250904
  Receipt Date: 20250904
  Transmission Date: 20251021
  Serious: Yes (Life-Threatening, Hospitalization, Other)
  Sender: PFIZER
  Company Number: CA-PFIZER INC-202500175046

PATIENT
  Sex: Male

DRUGS (4)
  1. ADALIMUMAB [Suspect]
     Active Substance: ADALIMUMAB
     Indication: Rheumatoid arthritis
     Route: 058
  2. METHOTREXATE [Concomitant]
     Active Substance: METHOTREXATE
     Route: 065
  3. RAMIPRIL [Concomitant]
     Active Substance: RAMIPRIL
  4. ROSUVASTATIN CALCIUM [Concomitant]
     Active Substance: ROSUVASTATIN CALCIUM
     Route: 065

REACTIONS (8)
  - Decreased immune responsiveness [Unknown]
  - Infection [Unknown]
  - Infection in an immunocompromised host [Unknown]
  - Limb traumatic amputation [Unknown]
  - Localised infection [Unknown]
  - Pain in extremity [Unknown]
  - Pneumonia [Unknown]
  - Renal failure [Unknown]
